FAERS Safety Report 5107004-4 (Version None)
Quarter: 2006Q3

REPORT INFORMATION
  Report Type: 
  Country: None (occurrence: None)
  Receive Date: 20060913
  Receipt Date: 20060816
  Transmission Date: 20061208
  Serious: Yes (Hospitalization, Other)
  Sender: FDA-Public Use
  Company Number: US200601003887

PATIENT
  Age: 41 Year
  Sex: Male
  Weight: 93 kg

DRUGS (1)
  1. ZYPREXA [Suspect]
     Indication: BIPOLAR DISORDER
     Dosage: 20 MG, ORAL
     Route: 048
     Dates: start: 19960101

REACTIONS (9)
  - BLOOD CHOLESTEROL ABNORMAL [None]
  - BLOOD TRIGLYCERIDES INCREASED [None]
  - CHOLECYSTECTOMY [None]
  - DIABETES MELLITUS NON-INSULIN-DEPENDENT [None]
  - INSULIN RESISTANCE [None]
  - METABOLIC DISORDER [None]
  - PANCREATITIS [None]
  - VISION BLURRED [None]
  - WEIGHT INCREASED [None]
